FAERS Safety Report 4323515-3 (Version None)
Quarter: 2004Q1

REPORT INFORMATION
  Report Type: 
  Country: None (occurrence: None)
  Receive Date: 20040323
  Receipt Date: 20031229
  Transmission Date: 20041129
  Serious: No
  Sender: FDA-Public Use
  Company Number: US_040199680

PATIENT
  Sex: Male
  Weight: 91 kg

DRUGS (5)
  1. CIALIS [Suspect]
     Indication: ERECTILE DYSFUNCTION
     Dosage: 10 MG/DAY
     Dates: start: 20031226
  2. FLUOVASTATIN SODIUM [Concomitant]
  3. OXYBUTYNIN HYDROCHLORIDE [Concomitant]
  4. GLUCOPHAGE [Concomitant]
  5. GLUCOTROL [Concomitant]

REACTIONS (2)
  - DRUG INEFFECTIVE [None]
  - SPONTANEOUS PENILE ERECTION [None]
